FAERS Safety Report 9246106 (Version 7)
Quarter: 2016Q2

REPORT INFORMATION
  Report Type: Spontaneous
  Country: US (occurrence: US)
  Receive Date: 20130422
  Receipt Date: 20160406
  Transmission Date: 20160815
  Serious: Yes (Other)
  Sender: FDA-Public Use
  Company Number: US-009507513-1304USA009061

PATIENT
  Sex: Male
  Weight: 83.9 kg

DRUGS (3)
  1. PROPECIA [Suspect]
     Active Substance: FINASTERIDE
     Indication: ANDROGENETIC ALOPECIA
     Dosage: 1 MG, QD
     Route: 048
     Dates: start: 20060922, end: 200912
  2. ADVAIR HFA [Concomitant]
     Active Substance: FLUTICASONE PROPIONATE\SALMETEROL XINAFOATE
     Indication: ASTHMA
     Dosage: UNK
     Route: 055
     Dates: start: 2001
  3. VENTOLIN [Concomitant]
     Active Substance: ALBUTEROL SULFATE
     Indication: ASTHMA
     Dosage: UNK
     Route: 055
     Dates: start: 1999

REACTIONS (32)
  - Stress [Not Recovered/Not Resolved]
  - Libido decreased [Unknown]
  - Hyperprolactinaemia [Unknown]
  - Sexual dysfunction [Not Recovered/Not Resolved]
  - Hypertonic bladder [Unknown]
  - Night sweats [Unknown]
  - Flushing [Unknown]
  - Urinary retention [Unknown]
  - Dysuria [Unknown]
  - Intervertebral disc protrusion [Unknown]
  - Gastrooesophageal reflux disease [Unknown]
  - Sperm concentration decreased [Not Recovered/Not Resolved]
  - Fatigue [Unknown]
  - Osteotomy [Unknown]
  - Angiopathy [Unknown]
  - Palpitations [Unknown]
  - Feeling abnormal [Unknown]
  - Cognitive disorder [Not Recovered/Not Resolved]
  - Anxiety [Not Recovered/Not Resolved]
  - Hyperprolactinaemia [Unknown]
  - Nocturia [Unknown]
  - Sinus disorder [Unknown]
  - Headache [Unknown]
  - Hip surgery [Unknown]
  - Lip repair [Unknown]
  - Depression [Not Recovered/Not Resolved]
  - Urinary incontinence [Unknown]
  - Erectile dysfunction [Unknown]
  - Urinary straining [Unknown]
  - Hypertension [Unknown]
  - Pollakiuria [Unknown]
  - Bladder obstruction [Unknown]

NARRATIVE: CASE EVENT DATE: 200702
